FAERS Safety Report 22325520 (Version 1)
Quarter: 2023Q2

REPORT INFORMATION
  Report Type: Spontaneous
  Country: CN (occurrence: CN)
  Receive Date: 20230516
  Receipt Date: 20230516
  Transmission Date: 20230722
  Serious: Yes (Hospitalization, Other)
  Sender: FDA-Public Use
  Company Number: CN-GLAXOSMITHKLINE-CN2023APC066164

PATIENT

DRUGS (24)
  1. LAMICTAL [Suspect]
     Active Substance: LAMOTRIGINE
     Indication: Bipolar disorder
     Dosage: 25 MG, QD (50 MG; EVERY NIGHT)
     Route: 048
     Dates: start: 20230417, end: 20230506
  2. LAMICTAL [Suspect]
     Active Substance: LAMOTRIGINE
     Indication: Euphoric mood
     Dosage: 25 MG, BID (50MG)
     Route: 048
     Dates: start: 20230501
  3. LAMICTAL [Suspect]
     Active Substance: LAMOTRIGINE
     Indication: Sleep disorder
  4. RISPERDAL [Suspect]
     Active Substance: RISPERIDONE
     Indication: Bipolar disorder
     Dosage: 0.5 MG, BID (1 MG)
     Route: 048
     Dates: start: 20230501, end: 20230506
  5. RISPERDAL [Suspect]
     Active Substance: RISPERIDONE
     Indication: Antipsychotic therapy
     Dosage: 1 MG, BID (1 MG)
     Route: 048
     Dates: start: 20230503
  6. CLOZAPINE [Suspect]
     Active Substance: CLOZAPINE
     Indication: Bipolar disorder
     Dosage: 50 MG, QD
     Route: 048
     Dates: start: 20230421, end: 20230506
  7. CLOZAPINE [Suspect]
     Active Substance: CLOZAPINE
     Indication: Psychotic symptom
     Dosage: 25 MG, Z (25 MG; EVERY NIGHT)
     Route: 048
     Dates: start: 20230421
  8. CLOZAPINE [Suspect]
     Active Substance: CLOZAPINE
     Dosage: 50 MG, Z (25 MG; EVERY NIGHT)
     Route: 048
     Dates: start: 20230424
  9. FOLIC ACID [Suspect]
     Active Substance: FOLIC ACID
     Indication: Blood homocysteine increased
     Dosage: 5 MG, TID (5 MG)
     Route: 048
     Dates: start: 20230401
  10. OLANZAPINE [Suspect]
     Active Substance: OLANZAPINE
     Indication: Psychotic symptom
     Dosage: 5 MG, Z (5 MG; EVERY NIGHT)
     Route: 048
     Dates: start: 20230402, end: 20230421
  11. HERBALS [Suspect]
     Active Substance: HERBALS
     Indication: Cough
     Dosage: 10 G, BID (10G; TAKEN BY DISSOLVING)
     Dates: start: 20230402
  12. HERBALS [Suspect]
     Active Substance: HERBALS
     Indication: Oropharyngeal discomfort
  13. DEXTROSE [Suspect]
     Active Substance: DEXTROSE\DEXTROSE MONOHYDRATE
     Indication: Euphoric mood
     Dosage: 250 ML, QD (250ML:12.5G(5 %))
     Route: 042
     Dates: start: 20230417
  14. DEXTROSE [Suspect]
     Active Substance: DEXTROSE\DEXTROSE MONOHYDRATE
     Indication: Sleep disorder
  15. DIAZEPAM [Suspect]
     Active Substance: DIAZEPAM
     Indication: Euphoric mood
     Dosage: 2.5 MG, QD (2ML:10MG)
     Route: 042
     Dates: start: 20230417, end: 20230421
  16. DIAZEPAM [Suspect]
     Active Substance: DIAZEPAM
     Indication: Sleep disorder
  17. LURASIDONE HYDROCHLORIDE [Suspect]
     Active Substance: LURASIDONE HYDROCHLORIDE
     Indication: Euphoric mood
     Dosage: 40 MG, QD (40 MG)
     Route: 048
     Dates: start: 20230417, end: 20230421
  18. LURASIDONE HYDROCHLORIDE [Suspect]
     Active Substance: LURASIDONE HYDROCHLORIDE
     Indication: Sleep disorder
  19. METOPROLOL SUCCINATE [Suspect]
     Active Substance: METOPROLOL SUCCINATE
     Indication: Heart rate increased
     Dosage: 23.75 MG, QD
     Route: 048
     Dates: start: 20230422
  20. METOPROLOL SUCCINATE [Suspect]
     Active Substance: METOPROLOL SUCCINATE
     Dosage: 23.75 MG, QD (47.5MG)
     Route: 048
     Dates: start: 20230424
  21. QUETIAPINE FUM [Concomitant]
     Indication: Psychotic symptom
     Dosage: 12.5 MG, Z (25 MG; EVERY NIGHT )
     Route: 048
     Dates: start: 20230401, end: 20230402
  22. CLONAZEPAM [Concomitant]
     Active Substance: CLONAZEPAM
     Indication: Bipolar disorder
     Dosage: 1 MG, QD
     Route: 048
     Dates: start: 20230417, end: 20230506
  23. CLONAZEPAM [Concomitant]
     Active Substance: CLONAZEPAM
     Indication: Euphoric mood
     Dosage: 1 MG, Z (2MG; EVERY NIGHT)
     Route: 048
  24. CLONAZEPAM [Concomitant]
     Active Substance: CLONAZEPAM
     Indication: Sleep disorder

REACTIONS (6)
  - Hepatic function abnormal [Unknown]
  - Heart rate increased [Unknown]
  - Palpitations [Unknown]
  - Aspartate aminotransferase increased [Unknown]
  - Alanine aminotransferase increased [Unknown]
  - Product use in unapproved indication [Unknown]

NARRATIVE: CASE EVENT DATE: 20230417
